FAERS Safety Report 8248680-7 (Version None)
Quarter: 2012Q1

REPORT INFORMATION
  Report Type: 
  Country: None (occurrence: None)
  Receive Date: 20120331
  Receipt Date: 20120323
  Transmission Date: 20120608
  Serious: Yes (Death)
  Sender: FDA-Public Use
  Company Number: PHHY2012BR004956

PATIENT
  Sex: Female

DRUGS (2)
  1. DIOVAN [Suspect]
  2. RETARD [Concomitant]

REACTIONS (2)
  - PNEUMONIA [None]
  - DRUG INEFFECTIVE [None]
